FAERS Safety Report 7807085-0 (Version None)
Quarter: 2011Q4

REPORT INFORMATION
  Report Type: 
  Country: None (occurrence: None)
  Receive Date: 20111011
  Receipt Date: 20110928
  Transmission Date: 20120403
  Serious: Yes (Death, Hospitalization)
  Sender: FDA-Public Use
  Company Number: JP-PFIZER INC-JP-WYE-H12132409

PATIENT
  Age: 78 Year
  Sex: Female

DRUGS (4)
  1. REMICADE [Concomitant]
     Dosage: UNK
     Route: 042
     Dates: start: 20060401
  2. METHYLPREDNISOLONE [Concomitant]
     Indication: RHEUMATOID ARTHRITIS
     Dosage: 2 MG, 1X/DAY
  3. CELECOXIB [Suspect]
     Indication: RHEUMATOID ARTHRITIS
     Dosage: 300 MG, DAILY
     Route: 048
  4. RHEUMATREX [Suspect]
     Indication: RHEUMATOID ARTHRITIS
     Dosage: 6 MG, WEEKLY
     Route: 048
     Dates: start: 20080501

REACTIONS (6)
  - GASTRIC ULCER [None]
  - GASTROINTESTINAL HAEMORRHAGE [None]
  - POST PROCEDURAL COMPLICATION [None]
  - PNEUMOCYSTIS JIROVECI PNEUMONIA [None]
  - JEJUNAL PERFORATION [None]
  - CYTOMEGALOVIRUS ENTEROCOLITIS [None]
